FAERS Safety Report 7130674-6 (Version None)
Quarter: 2010Q4

REPORT INFORMATION
  Report Type: 
  Country: None (occurrence: None)
  Receive Date: 20101101
  Receipt Date: 20101006
  Transmission Date: 20110411
  Serious: No
  Sender: FDA-Public Use
  Company Number: 2010-13381

PATIENT
  Age: 54 Year
  Sex: Male
  Weight: 95.2 kg

DRUGS (3)
  1. RAPAFLO [Suspect]
     Indication: PROSTATOMEGALY
     Dosage: 8 MG, DAILY, ORAL
     Route: 048
     Dates: start: 20100801
  2. .. [Concomitant]
  3. .. [Concomitant]

REACTIONS (19)
  - ASTHENIA [None]
  - BACK PAIN [None]
  - DIARRHOEA [None]
  - DIZZINESS [None]
  - FAECES PALE [None]
  - FEELING COLD [None]
  - FEELING HOT [None]
  - FLUSHING [None]
  - GROIN PAIN [None]
  - HEADACHE [None]
  - HEART RATE INCREASED [None]
  - HYPERHIDROSIS [None]
  - INSOMNIA [None]
  - MALAISE [None]
  - MYALGIA [None]
  - NAUSEA [None]
  - PAIN [None]
  - PAIN IN EXTREMITY [None]
  - PROSTATIC PAIN [None]
